FAERS Safety Report 4382631-0 (Version None)
Quarter: 2004Q2

REPORT INFORMATION
  Report Type: 
  Country: None (occurrence: None)
  Receive Date: 20040622
  Receipt Date: 20040616
  Transmission Date: 20050107
  Serious: Yes (Hospitalization)
  Sender: FDA-Public Use
  Company Number: US-GLAXOSMITHKLINE-A0514887A

PATIENT
  Age: 21 Year
  Sex: Female

DRUGS (12)
  1. ADVAIR DISKUS 100/50 [Suspect]
     Indication: ASTHMA
     Dosage: 1PUFF TWICE PER DAY
     Route: 055
  2. FLONASE [Suspect]
     Indication: DRUG USE FOR UNKNOWN INDICATION
     Route: 045
  3. PULMICORT [Concomitant]
  4. XOLAIR [Concomitant]
  5. ACTONEL [Concomitant]
  6. ALLEGRA [Concomitant]
  7. ALBUTEROL [Concomitant]
  8. DARVOCET [Concomitant]
  9. NEURONTIN [Concomitant]
  10. SOMA [Concomitant]
  11. SKELAXIN [Concomitant]
  12. NEXIUM [Concomitant]

REACTIONS (1)
  - HERPES VIRUS INFECTION [None]
